FAERS Safety Report 20993546 (Version 2)
Quarter: 2023Q2

REPORT INFORMATION
  Report Type: Spontaneous
  Country: US (occurrence: US)
  Receive Date: 20220622
  Receipt Date: 20230628
  Transmission Date: 20230721
  Serious: No
  Sender: FDA-Public Use
  Company Number: US-CTI BIOPHARMA-2022US02760

PATIENT

DRUGS (14)
  1. VONJO [Suspect]
     Active Substance: PACRITINIB
     Indication: Myelofibrosis
     Dosage: 200 MG, BID
     Route: 048
     Dates: start: 20220323
  2. VONJO [Suspect]
     Active Substance: PACRITINIB
     Dosage: 200 MILLIGRAM, BID
     Route: 048
     Dates: start: 20220323
  3. DOCUSATE SOD [Concomitant]
  4. DONEPEZIL [Concomitant]
     Active Substance: DONEPEZIL
  5. FERROUS SULFATE [Concomitant]
     Active Substance: FERROUS SULFATE
  6. FINASTERIDE [Concomitant]
     Active Substance: FINASTERIDE
  7. LISINOPRIL [Concomitant]
     Active Substance: LISINOPRIL
  8. LORATADINE [Concomitant]
     Active Substance: LORATADINE
  9. PANTOPRAZOLE [Concomitant]
     Active Substance: PANTOPRAZOLE
  10. MIRALAX [Concomitant]
     Active Substance: POLYETHYLENE GLYCOL 3350
  11. PRAVASTATIN [Concomitant]
     Active Substance: PRAVASTATIN
  12. TERAZOSIN [Concomitant]
     Active Substance: TERAZOSIN HYDROCHLORIDE
  13. TRINTELLIX [Concomitant]
     Active Substance: VORTIOXETINE HYDROBROMIDE
  14. ZOFRAN [Concomitant]
     Active Substance: ONDANSETRON HYDROCHLORIDE

REACTIONS (2)
  - Platelet transfusion [Unknown]
  - Transfusion [Unknown]

NARRATIVE: CASE EVENT DATE: 20230401
